FAERS Safety Report 17476287 (Version 1)
Quarter: 2020Q1

REPORT INFORMATION
  Report Type: Report from Study
  Country: BR (occurrence: BR)
  Receive Date: 20200228
  Receipt Date: 20200228
  Transmission Date: 20200409
  Serious: Yes (Hospitalization)
  Sender: FDA-Public Use
  Company Number: BR-JNJFOC-20181025088

PATIENT
  Age: 31 Year
  Sex: Male
  Weight: 60 kg

DRUGS (8)
  1. STELARA [Suspect]
     Active Substance: USTEKINUMAB
     Indication: CROHN^S DISEASE
     Route: 042
     Dates: start: 20180925
  2. PREDNISONE. [Concomitant]
     Active Substance: PREDNISONE
     Route: 065
  3. FOLIC ACID. [Concomitant]
     Active Substance: FOLIC ACID
     Route: 065
  4. PREDNISOLONE. [Concomitant]
     Active Substance: PREDNISOLONE
     Route: 065
  5. STELARA [Suspect]
     Active Substance: USTEKINUMAB
     Route: 058
     Dates: start: 201812
  6. OMEPRAZOLE. [Concomitant]
     Active Substance: OMEPRAZOLE
     Route: 065
  7. STELARA [Suspect]
     Active Substance: USTEKINUMAB
     Route: 058
  8. STELARA [Suspect]
     Active Substance: USTEKINUMAB
     Route: 058
     Dates: start: 20190520

REACTIONS (10)
  - Stoma site pain [Unknown]
  - Infection [Recovered/Resolved]
  - Diarrhoea [Not Recovered/Not Resolved]
  - Intestinal obstruction [Recovering/Resolving]
  - Rhinorrhoea [Unknown]
  - Gastrointestinal stoma complication [Unknown]
  - Product dose omission [Unknown]
  - Abdominal pain [Not Recovered/Not Resolved]
  - Incision site pain [Unknown]
  - Cough [Unknown]

NARRATIVE: CASE EVENT DATE: 201810
